FAERS Safety Report 7522219-3 (Version None)
Quarter: 2011Q2

REPORT INFORMATION
  Report Type: 
  Country: None (occurrence: None)
  Receive Date: 20110603
  Receipt Date: 20091122
  Transmission Date: 20111010
  Serious: Yes (Death, Hospitalization, Other)
  Sender: FDA-Public Use
  Company Number: US-BAYER-200940376NA

PATIENT
  Age: 68 Year
  Weight: 90.9 kg

DRUGS (17)
  1. HEPARIN [Concomitant]
     Dosage: 5000 UNITS THEN 1000 UNITS/HOUR
     Route: 042
  2. LASIX [Concomitant]
     Dosage: UNK
     Route: 048
     Dates: start: 20020701, end: 20020704
  3. PROTAMINE SULFATE [Concomitant]
     Dosage: 500 MG
     Route: 042
     Dates: start: 20020705, end: 20020705
  4. RED BLOOD CELLS [Concomitant]
     Dosage: 500 ML
     Dates: start: 20020705
  5. PLAVIX [Concomitant]
     Dosage: 75 MG DAILY
     Route: 048
  6. HEPARIN [Concomitant]
     Dosage: 40,000 UNITS
     Route: 042
     Dates: start: 20020705, end: 20020705
  7. LASIX [Concomitant]
  8. VASOTEC [Concomitant]
     Dosage: UNK
     Route: 048
     Dates: start: 19940101
  9. NITROGLYCERIN [Concomitant]
     Dosage: 1 INCH EVERY 8 HOURS
     Route: 062
     Dates: start: 19960101
  10. AMIODARONE HCL [Concomitant]
     Dosage: 150 MG
     Route: 042
  11. ACETYLSALICYLIC ACID SRT [Concomitant]
     Dosage: 81 MG
     Route: 048
  12. NITROGLYCERIN [Concomitant]
     Dosage: 2 ML/HOUR
     Route: 042
  13. LOPRESSOR [Concomitant]
     Dosage: 25 MG DAILY
     Route: 048
  14. TRASYLOL [Suspect]
     Indication: CORONARY ARTERY BYPASS
     Dosage: INITIAL (TEST) DOSE  OF 1 ML; 200 ML CARDIAOPULMONARY BYPASS PRIME
     Route: 042
     Dates: start: 20020705, end: 20020705
  15. TRASYLOL [Suspect]
     Dosage: 199 ML LOADING DOSE FOLLOWED BY 200 ML INFUSION
     Route: 042
     Dates: start: 20020705, end: 20020705
  16. DIOVAN [Concomitant]
     Dosage: 160 MG, QD
  17. LASIX [Concomitant]
     Dosage: UNK
     Route: 042
     Dates: start: 20020701, end: 20020704

REACTIONS (13)
  - RENAL FAILURE [None]
  - DEATH [None]
  - INJURY [None]
  - RENAL IMPAIRMENT [None]
  - STRESS [None]
  - MULTI-ORGAN FAILURE [None]
  - RENAL INJURY [None]
  - FEAR [None]
  - ANHEDONIA [None]
  - PAIN [None]
  - ANXIETY [None]
  - EMOTIONAL DISTRESS [None]
  - UNEVALUABLE EVENT [None]
